FAERS Safety Report 18864176 (Version 5)
Quarter: 2021Q4

REPORT INFORMATION
  Report Type: Spontaneous
  Country: JP (occurrence: JP)
  Receive Date: 20210209
  Receipt Date: 20211014
  Transmission Date: 20220303
  Serious: Yes (Hospitalization, Other)
  Sender: FDA-Public Use
  Company Number: JP-ASTELLAS-2021JP002231

PATIENT
  Age: 20 Year
  Sex: Male
  Weight: 61 kg

DRUGS (17)
  1. PROGRAF [Suspect]
     Active Substance: TACROLIMUS
     Indication: Colitis ulcerative
     Route: 048
     Dates: start: 20180925, end: 20180930
  2. PROGRAF [Suspect]
     Active Substance: TACROLIMUS
     Route: 048
     Dates: start: 20181001, end: 20181021
  3. PROGRAF [Suspect]
     Active Substance: TACROLIMUS
     Route: 048
     Dates: start: 20181022, end: 20181125
  4. PROGRAF [Suspect]
     Active Substance: TACROLIMUS
     Route: 048
     Dates: start: 20181126, end: 20190127
  5. BIO-THREE [Concomitant]
     Active Substance: HERBALS
     Indication: Colitis ulcerative
     Route: 048
     Dates: start: 2016
  6. MERCAPTOPURINE [Concomitant]
     Active Substance: MERCAPTOPURINE
     Indication: Colitis ulcerative
     Dosage: 0.3 G, ONCE DAILY
     Route: 048
     Dates: start: 20171222, end: 20180705
  7. MERCAPTOPURINE [Concomitant]
     Active Substance: MERCAPTOPURINE
     Dosage: 0.4 G, ONCE DAILY
     Route: 048
     Dates: start: 20180706, end: 20181125
  8. MERCAPTOPURINE [Concomitant]
     Active Substance: MERCAPTOPURINE
     Dosage: 0.45 G, ONCE DAILY
     Route: 048
     Dates: start: 20181126, end: 20190127
  9. MERCAPTOPURINE [Concomitant]
     Active Substance: MERCAPTOPURINE
     Dosage: 0.5 G, ONCE DAILY
     Route: 048
     Dates: start: 20190128, end: 20190501
  10. MERCAPTOPURINE [Concomitant]
     Active Substance: MERCAPTOPURINE
     Dosage: 0.7 G, ONCE DAILY
     Route: 048
     Dates: start: 20190502
  11. PREDONINE [Concomitant]
     Active Substance: PREDNISOLONE
     Indication: Colitis ulcerative
     Dosage: 30 MG/DAY, UNKNOWN FREQ.
     Route: 065
     Dates: start: 20170609, end: 20170801
  12. PREDONINE [Concomitant]
     Active Substance: PREDNISOLONE
     Dosage: 60 MG/DAY, UNKNOWN FREQ.
     Route: 065
     Dates: start: 20180510
  13. LIALDA [Concomitant]
     Active Substance: MESALAMINE
     Indication: Colitis ulcerative
     Route: 048
     Dates: start: 20180525
  14. Incremin [Concomitant]
     Indication: Iron deficiency anaemia
     Route: 048
     Dates: start: 20180622
  15. SULFAMETHOXAZOLE\TRIMETHOPRIM [Concomitant]
     Active Substance: SULFAMETHOXAZOLE\TRIMETHOPRIM
     Indication: Antiviral prophylaxis
     Route: 048
     Dates: start: 20180509, end: 20180928
  16. SULFAMETHOXAZOLE\TRIMETHOPRIM [Concomitant]
     Active Substance: SULFAMETHOXAZOLE\TRIMETHOPRIM
     Route: 048
     Dates: start: 20190128, end: 20190211
  17. ENTYVIO [Concomitant]
     Active Substance: VEDOLIZUMAB
     Indication: Colitis ulcerative
     Dosage: UNK UNK, UNKNOWN FREQ.
     Route: 065
     Dates: start: 20190128

REACTIONS (4)
  - Intussusception [Recovered/Resolved]
  - Intussusception [Recovered/Resolved]
  - Colitis ulcerative [Recovering/Resolving]
  - Therapeutic response decreased [Unknown]

NARRATIVE: CASE EVENT DATE: 20190128
